FAERS Safety Report 22768884 (Version 2)
Quarter: 2024Q3

REPORT INFORMATION
  Report Type: Spontaneous
  Country: FR (occurrence: FR)
  Receive Date: 20230731
  Receipt Date: 20240913
  Transmission Date: 20241016
  Serious: Yes (Hospitalization)
  Sender: BRISTOL MYERS SQUIBB
  Company Number: None

PATIENT
  Age: 70 Year
  Sex: Female
  Weight: 44 kg

DRUGS (7)
  1. ELIQUIS [Suspect]
     Active Substance: APIXABAN
     Indication: Product used for unknown indication
     Route: 048
     Dates: start: 20230707, end: 20230707
  2. KEPPRA [Suspect]
     Active Substance: LEVETIRACETAM
     Indication: Wrong patient received product
     Route: 048
     Dates: start: 20230707, end: 20230707
  3. LEVOTHYROXINE [Suspect]
     Active Substance: LEVOTHYROXINE\LEVOTHYROXINE SODIUM
     Indication: Wrong patient received product
     Route: 048
     Dates: start: 20230707, end: 20230707
  4. LAMICTAL [Suspect]
     Active Substance: LAMOTRIGINE
     Indication: Wrong patient received product
     Route: 048
     Dates: start: 20230707, end: 20230707
  5. BISOPROLOL FUMARATE [Suspect]
     Active Substance: BISOPROLOL FUMARATE
     Indication: Wrong patient received product
     Route: 048
     Dates: start: 20230707, end: 20230707
  6. DIGOXIN [Suspect]
     Active Substance: DIGOXIN
     Indication: Wrong patient received product
     Route: 048
     Dates: start: 20230707, end: 20230707
  7. INOVELON [Suspect]
     Active Substance: RUFINAMIDE
     Indication: Wrong patient received product
     Dosage: 3 TABLETS
     Route: 048
     Dates: start: 20230707, end: 20230707

REACTIONS (2)
  - Wrong patient received product [Recovered/Resolved]
  - Bradycardia [Recovered/Resolved]

NARRATIVE: CASE EVENT DATE: 20230707
